FAERS Safety Report 5837864-0 (Version None)
Quarter: 2008Q3

REPORT INFORMATION
  Report Type: 
  Country: None (occurrence: None)
  Receive Date: 20080808
  Receipt Date: 20080310
  Transmission Date: 20090109
  Serious: No
  Sender: FDA-Public Use
  Company Number: A0715820A

PATIENT
  Age: 32 Year
  Sex: Female

DRUGS (1)
  1. PAXIL CR [Suspect]
     Indication: DRUG USE FOR UNKNOWN INDICATION
     Dosage: 37.5MG UNKNOWN
     Route: 048

REACTIONS (1)
  - ACNE [None]
